FAERS Safety Report 4960133-8 (Version None)
Quarter: 2006Q1

REPORT INFORMATION
  Report Type: 
  Country: None (occurrence: None)
  Receive Date: 20060328
  Receipt Date: 20060310
  Transmission Date: 20060701
  Serious: Yes (Hospitalization, Other)
  Sender: FDA-Public Use
  Company Number: US_0510123237

PATIENT
  Age: 39 Year
  Sex: Female
  Weight: 67.1 kg

DRUGS (10)
  1. ZYPREXA [Suspect]
     Indication: DEPRESSION
     Dosage: 5 MG, EACH EVENING, ORAL; 2.5 MG, EACH EVENING, UNK
     Route: 048
     Dates: start: 20010102, end: 20030101
  2. ZYPREXA [Suspect]
     Indication: DEPRESSION
     Dosage: 5 MG, EACH EVENING, ORAL; 2.5 MG, EACH EVENING, UNK
     Route: 048
     Dates: start: 20030201, end: 20030401
  3. PAXIL [Concomitant]
  4. METOPROLOL (METOPROLOL) [Concomitant]
  5. PROPRANOLOL [Concomitant]
  6. LABETALOL HCL [Concomitant]
  7. XANAX [Concomitant]
  8. BUSPAR [Concomitant]
  9. COMPAZINE [Concomitant]
  10. TEMAZEPAM [Concomitant]

REACTIONS (29)
  - ABDOMINAL PAIN [None]
  - ANAEMIA [None]
  - ARTHRITIS [None]
  - BLOOD ALKALINE PHOSPHATASE INCREASED [None]
  - BLOOD CHOLESTEROL ABNORMAL [None]
  - CARDIAC FAILURE CONGESTIVE [None]
  - CHRONIC OBSTRUCTIVE PULMONARY DISEASE [None]
  - DIABETES MELLITUS [None]
  - DIABETIC KETOACIDOSIS [None]
  - DYSFUNCTIONAL UTERINE BLEEDING [None]
  - HEPATIC ENZYME INCREASED [None]
  - HYPERGLYCAEMIA [None]
  - HYPERKALAEMIA [None]
  - HYPERLIPIDAEMIA [None]
  - HYPERPARATHYROIDISM [None]
  - HYPERPHAGIA [None]
  - HYPOPHOSPHATAEMIA [None]
  - HYPOTENSION [None]
  - LACERATION [None]
  - METABOLIC ALKALOSIS [None]
  - OBESITY [None]
  - PANCREATITIS [None]
  - PARATHYROID TUMOUR BENIGN [None]
  - POLYDIPSIA [None]
  - PULMONARY OEDEMA [None]
  - THYROID GLAND CANCER [None]
  - TREATMENT NONCOMPLIANCE [None]
  - VENOUS INJURY [None]
  - VISION BLURRED [None]
